FAERS Safety Report 6930657-2 (Version None)
Quarter: 2010Q3

REPORT INFORMATION
  Report Type: 
  Country: None (occurrence: None)
  Receive Date: 20100818
  Receipt Date: 20100604
  Transmission Date: 20110219
  Serious: No
  Sender: FDA-Public Use
  Company Number: A0863080A

PATIENT
  Age: 83 Year
  Sex: Female

DRUGS (10)
  1. COREG CR [Suspect]
     Dosage: 20MG PER DAY
     Route: 048
     Dates: start: 20090101
  2. COZAAR [Concomitant]
  3. ARIMIDEX [Concomitant]
  4. SIMVASTATIN [Concomitant]
  5. LEVOTHYROXINE SODIUM [Concomitant]
  6. AMITRIPTYLINE HYDROCHLORIDE [Concomitant]
  7. VITAMIN D [Concomitant]
  8. DICYCLOMINE [Concomitant]
  9. TRIAMTERENE [Concomitant]
  10. CARBAMAZEPINE [Concomitant]

REACTIONS (2)
  - BLOOD PRESSURE INADEQUATELY CONTROLLED [None]
  - NERVOUSNESS [None]
